FAERS Safety Report 25700005 (Version 1)
Quarter: 2025Q3

REPORT INFORMATION
  Report Type: Spontaneous
  Country: US (occurrence: None)
  Receive Date: 20250818
  Receipt Date: 20250818
  Transmission Date: 20251021
  Serious: Yes (Death)
  Sender: FDA-CTU
  Company Number: None

PATIENT
  Age: 82 Year
  Sex: Female

DRUGS (2)
  1. APIXABAN [Suspect]
     Active Substance: APIXABAN
  2. APIXABAN [Concomitant]
     Active Substance: APIXABAN

REACTIONS (6)
  - Unresponsive to stimuli [None]
  - Deep vein thrombosis [None]
  - Subarachnoid haemorrhage [None]
  - Haematuria [None]
  - Platelet count abnormal [None]
  - Hypertension [None]

NARRATIVE: CASE EVENT DATE: 20240628
